FAERS Safety Report 5050567-8 (Version None)
Quarter: 2006Q3

REPORT INFORMATION
  Report Type: 
  Country: None (occurrence: None)
  Receive Date: 20060713
  Receipt Date: 20060605
  Transmission Date: 20061208
  Serious: Yes (Life-Threatening)
  Sender: FDA-Public Use
  Company Number: JP-JPN-A200601873

PATIENT
  Age: 72 Year
  Sex: Female
  Weight: 44 kg

DRUGS (18)
  1. VALTREX [Suspect]
     Indication: HERPES ZOSTER
     Dosage: 1000MG PER DAY
     Route: 048
     Dates: start: 20060531, end: 20060601
  2. THEO-DUR [Concomitant]
     Indication: ASTHMA
     Dosage: 200MG PER DAY
     Route: 048
     Dates: end: 20060602
  3. KIPRES [Concomitant]
     Indication: ASTHMA
     Dosage: 5MG PER DAY
     Route: 048
     Dates: end: 20060602
  4. EBASTEL [Concomitant]
     Indication: ASTHMA
     Dosage: 10MG PER DAY
     Route: 048
     Dates: end: 20060602
  5. PERSANTIN [Concomitant]
     Dosage: 300MG PER DAY
     Route: 048
     Dates: end: 20060602
  6. ISOSORBIDE MONONITRATE [Concomitant]
     Indication: ANGINA PECTORIS
     Dosage: 40MG PER DAY
     Route: 048
     Dates: end: 20060602
  7. ALLOPURINOL [Concomitant]
     Dosage: 200MG PER DAY
     Route: 048
     Dates: end: 20060602
  8. TERNELIN [Concomitant]
     Indication: CERVICOBRACHIAL SYNDROME
     Dosage: 2MG PER DAY
     Route: 048
     Dates: start: 20060602
  9. VASOLAN [Concomitant]
     Indication: ANGINA PECTORIS
     Dosage: 120MG PER DAY
     Route: 048
     Dates: end: 20060602
  10. MUCOSOLVAN [Concomitant]
     Indication: ASTHMA
     Dosage: 45MG PER DAY
     Route: 048
     Dates: end: 20060602
  11. FRANDOL S [Concomitant]
     Indication: ANGINA PECTORIS
     Dosage: 40MG PER DAY
     Route: 062
     Dates: end: 20060602
  12. GASTER D [Concomitant]
     Indication: GASTRITIS
     Dosage: 20MG PER DAY
     Route: 048
     Dates: end: 20060602
  13. BIOFERMIN R [Concomitant]
     Dosage: 3MG PER DAY
     Route: 048
     Dates: end: 20060602
  14. MEROPEN [Concomitant]
     Dosage: .5MG PER DAY
     Route: 042
     Dates: start: 20060425, end: 20060515
  15. FUNGUARD [Concomitant]
     Indication: FUNGAL INFECTION
     Dosage: 100MG PER DAY
     Route: 048
     Dates: start: 20060428, end: 20060515
  16. EPOGEN [Concomitant]
     Route: 058
     Dates: start: 20060422
  17. NEUTROGIN [Concomitant]
     Dates: start: 20060425, end: 20060501
  18. GLOBULIN [Concomitant]
     Dates: start: 20060426, end: 20060430

REACTIONS (8)
  - APNOEA [None]
  - DEPRESSED LEVEL OF CONSCIOUSNESS [None]
  - EXTENSOR PLANTAR RESPONSE [None]
  - MIOSIS [None]
  - NEUROSIS [None]
  - PYREXIA [None]
  - SOMNOLENCE [None]
  - TACHYPNOEA [None]
